FAERS Safety Report 8490867-2 (Version None)
Quarter: 2012Q2

REPORT INFORMATION
  Report Type: 
  Country: None (occurrence: None)
  Receive Date: 20120629
  Receipt Date: 20120629
  Transmission Date: 20120825
  Serious: Yes (Disabling)
  Sender: FDA-Public Use
  Company Number: None

PATIENT
  Sex: Female
  Weight: 76.6579 kg

DRUGS (2)
  1. LEVOFLOXACIN [Suspect]
     Indication: BRONCHIECTASIS
     Dosage: 2 TIMES A DAY STOPPED AFTER FEB.
     Dates: start: 20120224
  2. CLINDAMYCIN [Suspect]
     Dosage: 2 TIMES A DAY STOPPED AFTER 2D
     Dates: start: 20120525

REACTIONS (6)
  - PAIN IN EXTREMITY [None]
  - ACTIVITIES OF DAILY LIVING IMPAIRED [None]
  - DIZZINESS [None]
  - MUSCULOSKELETAL PAIN [None]
  - PARAESTHESIA [None]
  - ARTHRALGIA [None]
